FAERS Safety Report 11251311 (Version 1)
Quarter: 2015Q3

REPORT INFORMATION
  Report Type: Spontaneous
  Country: US (occurrence: US)
  Receive Date: 20150708
  Receipt Date: 20150708
  Transmission Date: 20151125
  Serious: Yes (Death)
  Sender: FDA-Public Use
  Company Number: US-ELI_LILLY_AND_COMPANY-US201108007887

PATIENT
  Sex: Male
  Weight: 62.59 kg

DRUGS (1)
  1. GEMZAR [Suspect]
     Active Substance: GEMCITABINE HYDROCHLORIDE
     Indication: PANCREATIC CARCINOMA
     Dosage: 1800 MG EVERY 3 WEEKS
     Route: 042
     Dates: start: 20100921, end: 20101028

REACTIONS (1)
  - Neoplasm progression [Fatal]
